FAERS Safety Report 11901738 (Version 4)
Quarter: 2016Q1

REPORT INFORMATION
  Report Type: Report from Study
  Country: US (occurrence: US)
  Receive Date: 20160108
  Receipt Date: 20160111
  Transmission Date: 20160526
  Serious: No
  Sender: FDA-Public Use
  Company Number: US-ABBVIE-15P-163-1444094-00

PATIENT
  Age: 60 Year
  Sex: Male

DRUGS (2)
  1. RIBAVIRIN. [Concomitant]
     Active Substance: RIBAVIRIN
     Indication: HEPATITIS C
     Route: 048
  2. VIEKIRA PAK [Suspect]
     Active Substance: DASABUVIR\OMBITASVIR\PARITAPREVIR\RITONAVIR
     Indication: HEPATITIS C
     Dosage: TAKE VIEKIRA PAK PER MANUFACTURERS DIRECTIONS IN THE AM AND PM
     Route: 048
     Dates: start: 201507

REACTIONS (11)
  - Crying [Not Recovered/Not Resolved]
  - Fatigue [Not Recovered/Not Resolved]
  - Pain [Not Recovered/Not Resolved]
  - Restless legs syndrome [Not Recovered/Not Resolved]
  - Vomiting [Not Recovered/Not Resolved]
  - Nausea [Not Recovered/Not Resolved]
  - Poor quality sleep [Not Recovered/Not Resolved]
  - Vomiting [Not Recovered/Not Resolved]
  - Headache [Not Recovered/Not Resolved]
  - Urticaria [Not Recovered/Not Resolved]
  - Tooth fracture [Not Recovered/Not Resolved]

NARRATIVE: CASE EVENT DATE: 20150815
